FAERS Safety Report 9725241 (Version 2)
Quarter: 2014Q1

REPORT INFORMATION
  Report Type: Spontaneous
  Country: JP (occurrence: JP)
  Receive Date: 20131203
  Receipt Date: 20140108
  Transmission Date: 20141002
  Serious: Yes (Life-Threatening, Hospitalization)
  Sender: FDA-Public Use
  Company Number: JP-ROCHE-1308248

PATIENT
  Age: 75 Year
  Sex: Male

DRUGS (6)
  1. AVASTIN [Suspect]
     Indication: RECTAL CANCER RECURRENT
     Dosage: DOSAGE IS UNCERTAIN.
     Route: 041
     Dates: start: 20120623, end: 20120807
  2. ELPLAT [Suspect]
     Indication: RECTAL CANCER RECURRENT
     Route: 041
     Dates: start: 20120623, end: 20120807
  3. 5-FU [Suspect]
     Indication: RECTAL CANCER RECURRENT
     Route: 040
     Dates: start: 20120623, end: 20120807
  4. 5-FU [Suspect]
     Indication: RECTAL CANCER RECURRENT
     Route: 041
     Dates: start: 20120623, end: 20120807
  5. DECADRON [Suspect]
     Indication: RECTAL CANCER RECURRENT
     Route: 042
     Dates: start: 20120623, end: 20120807
  6. LEVOFOLINATE [Concomitant]
     Indication: RECTAL CANCER RECURRENT
     Dosage: DOSAGE IS UNCERTAIN
     Route: 041
     Dates: start: 20120623, end: 20120807

REACTIONS (6)
  - Small intestinal perforation [Recovering/Resolving]
  - Ileal ulcer [Unknown]
  - Vasculitis [Unknown]
  - Gastroenteritis radiation [Unknown]
  - Suture rupture [Unknown]
  - Enterocutaneous fistula [Unknown]
